FAERS Safety Report 5130560-7 (Version None)
Quarter: 2006Q4

REPORT INFORMATION
  Report Type: 
  Country: None (occurrence: None)
  Receive Date: 20061017
  Receipt Date: 20061017
  Transmission Date: 20070319
  Serious: Yes (Hospitalization)
  Sender: FDA-Public Use
  Company Number: None

PATIENT
  Sex: Female
  Weight: 72.7 kg

DRUGS (1)
  1. NEUPOGEN [Suspect]
     Indication: PANCYTOPENIA
     Dosage: 300 MCG DAILY SQ
     Route: 058
     Dates: start: 20060903, end: 20060906

REACTIONS (1)
  - LEUKOCYTOSIS [None]
